FAERS Safety Report 12693549 (Version 1)
Quarter: 2016Q3

REPORT INFORMATION
  Report Type: Spontaneous
  Country: EC (occurrence: EC)
  Receive Date: 20160829
  Receipt Date: 20160829
  Transmission Date: 20161109
  Serious: Yes (Death)
  Sender: FDA-Public Use
  Company Number: EC-SA-2016SA157142

PATIENT
  Age: 13 Year
  Sex: Male

DRUGS (1)
  1. CEREZYME [Suspect]
     Active Substance: IMIGLUCERASE
     Indication: GAUCHER^S DISEASE
     Route: 041
     Dates: start: 20160817, end: 20160817

REACTIONS (2)
  - Dyspnoea [Fatal]
  - Angina pectoris [Fatal]

NARRATIVE: CASE EVENT DATE: 20160823
